FAERS Safety Report 10047857 (Version 2)
Quarter: 2014Q1

REPORT INFORMATION
  Report Type: Report from Study
  Country: US (occurrence: US)
  Receive Date: 20140331
  Receipt Date: 20140331
  Transmission Date: 20141002
  Serious: Yes (Congenital Anomaly, Other)
  Sender: FDA-Public Use
  Company Number: US-B.I. PHARMACEUTICALS,INC./RIDGEFIELD-2002-BP-05239BP

PATIENT
  Age: 0 Day
  Sex: Male
  Weight: 1.82 kg

DRUGS (4)
  1. VIRAMUNE [Suspect]
     Indication: EXPOSURE DURING PREGNANCY
     Route: 064
     Dates: start: 20020611
  2. VIRAMUNE [Suspect]
     Route: 064
     Dates: start: 20020625
  3. LAMIVUDINE+ZIDOVUDINE (COMBIVIR, ZDV+3TC) [Concomitant]
     Indication: EXPOSURE DURING PREGNANCY
     Route: 064
     Dates: start: 20020611, end: 20021004
  4. ZIDOVUDINE (RETROVIR, ZDV) [Concomitant]
     Indication: EXPOSURE DURING PREGNANCY
     Route: 064
     Dates: start: 20021004, end: 20021004

REACTIONS (5)
  - Premature baby [Unknown]
  - Foetal alcohol syndrome [Unknown]
  - Patent ductus arteriosus [Unknown]
  - Microcephaly [Unknown]
  - Low birth weight baby [Unknown]
